FAERS Safety Report 8348444-X (Version None)
Quarter: 2012Q2

REPORT INFORMATION
  Report Type: 
  Country: None (occurrence: None)
  Receive Date: 20120509
  Receipt Date: 20120501
  Transmission Date: 20120825
  Serious: Yes (Hospitalization, Other)
  Sender: FDA-Public Use
  Company Number: US-MPIJNJ-2011-04476

PATIENT
  Sex: Female

DRUGS (3)
  1. MELPHALAN HYDROCHLORIDE [Suspect]
     Indication: MULTIPLE MYELOMA
     Dosage: 14 MG, CYCLIC
     Route: 048
     Dates: start: 20110222, end: 20110614
  2. VELCADE [Suspect]
     Indication: MULTIPLE MYELOMA
     Dosage: 1.3 MG/M2, 1/WEEK
     Route: 042
     Dates: start: 20110222, end: 20110628
  3. DECADRON [Suspect]
     Indication: MULTIPLE MYELOMA
     Dosage: 10 MG, UNK
     Route: 042
     Dates: start: 20110222, end: 20110614

REACTIONS (5)
  - SEPSIS [None]
  - HIP FRACTURE [None]
  - ESCHERICHIA URINARY TRACT INFECTION [None]
  - FALL [None]
  - FEBRILE NEUTROPENIA [None]
